FAERS Safety Report 5568871-3 (Version None)
Quarter: 2007Q4

REPORT INFORMATION
  Report Type: 
  Country: None (occurrence: None)
  Receive Date: 20071220
  Receipt Date: 20070221
  Transmission Date: 20080405
  Serious: No
  Sender: FDA-Public Use
  Company Number: A0640444A

PATIENT
  Age: 59 Year
  Sex: Male

DRUGS (7)
  1. AVODART [Suspect]
     Route: 048
  2. MULTI-VITAMIN [Concomitant]
  3. VITAMIN B-12 [Concomitant]
  4. ASCORBIC ACID [Concomitant]
  5. TAVIST-D [Concomitant]
  6. ASPIRIN [Concomitant]
  7. RHINOCORT [Concomitant]

REACTIONS (2)
  - MALE ORGASMIC DISORDER [None]
  - SEXUAL DYSFUNCTION [None]
